FAERS Safety Report 8579804-X (Version None)
Quarter: 2012Q3

REPORT INFORMATION
  Report Type: 
  Country: None (occurrence: None)
  Receive Date: 20120808
  Receipt Date: 20120724
  Transmission Date: 20120928
  Serious: Yes (Death, Congenital Anomaly)
  Sender: FDA-Public Use
  Company Number: GB-WATSON-2012-13355

PATIENT
  Age: 3 Month
  Sex: Male

DRUGS (2)
  1. FOLIC ACID [Concomitant]
     Indication: PRODUCT USED FOR UNKNOWN INDICATION
     Route: 065
  2. LAMOTRIGINE [Suspect]
     Indication: EPILEPSY
     Dosage: 300 MG, DAILY
     Route: 064

REACTIONS (4)
  - RENAL APLASIA [None]
  - ANAL ATRESIA [None]
  - POLYDACTYLY [None]
  - FOETAL EXPOSURE DURING PREGNANCY [None]
